FAERS Safety Report 6384323-5 (Version None)
Quarter: 2009Q4

REPORT INFORMATION
  Report Type: 
  Country: None (occurrence: None)
  Receive Date: 20091001
  Receipt Date: 20090922
  Transmission Date: 20100525
  Serious: Yes (Hospitalization)
  Sender: FDA-Public Use
  Company Number: US-CELGENEUS-163-21880-09082054

PATIENT
  Sex: Male

DRUGS (1)
  1. REVLIMID [Suspect]
     Indication: MULTIPLE MYELOMA
     Route: 048
     Dates: start: 20090723, end: 20090824

REACTIONS (6)
  - BLOOD COUNT ABNORMAL [None]
  - DECREASED APPETITE [None]
  - FAECALOMA [None]
  - HYPOTENSION [None]
  - RENAL FAILURE [None]
  - STOMATITIS [None]
